FAERS Safety Report 8273368-6 (Version None)
Quarter: 2012Q2

REPORT INFORMATION
  Report Type: 
  Country: None (occurrence: None)
  Receive Date: 20120411
  Receipt Date: 20120402
  Transmission Date: 20120825
  Serious: Yes (Hospitalization)
  Sender: FDA-Public Use
  Company Number: PHHY2012JP029207

PATIENT
  Age: 73 Year
  Sex: Female

DRUGS (2)
  1. CARBAMAZEPINE [Suspect]
     Indication: PARTIAL SEIZURES
     Route: 048
  2. VALPROATE SODIUM [Concomitant]

REACTIONS (3)
  - GRAND MAL CONVULSION [None]
  - SOMNOLENCE [None]
  - PARTIAL SEIZURES WITH SECONDARY GENERALISATION [None]
